FAERS Safety Report 7792824-8 (Version None)
Quarter: 2011Q4

REPORT INFORMATION
  Report Type: 
  Country: None (occurrence: None)
  Receive Date: 20111003
  Receipt Date: 20110926
  Transmission Date: 20120403
  Serious: Yes (Hospitalization)
  Sender: FDA-Public Use
  Company Number: US-GLAXOSMITHKLINE-A0946009A

PATIENT
  Age: 68 Year
  Sex: Female

DRUGS (17)
  1. ADVAIR DISKUS 100/50 [Suspect]
     Indication: ASTHMA
     Dosage: 1PUFF TWICE PER DAY
     Route: 055
     Dates: start: 20060101
  2. ALBUTEROL INHALER [Concomitant]
  3. TIMOLOL MALEATE [Concomitant]
  4. LEVOTHYROXINE SODIUM [Concomitant]
  5. FEXOFENADINE [Concomitant]
  6. ALBUTEROL [Concomitant]
  7. REFRESH [Concomitant]
  8. ALPRAZOLAM [Concomitant]
  9. NASONEX [Concomitant]
  10. PREDNISONE [Concomitant]
  11. VITAMIN B-12 [Concomitant]
  12. OXYGEN [Concomitant]
  13. SPIRIVA [Concomitant]
  14. TRAVATAN [Concomitant]
  15. RANITIDINE [Concomitant]
  16. LOTEMAX [Concomitant]
  17. MURO [Concomitant]

REACTIONS (9)
  - MENTAL IMPAIRMENT [None]
  - LUNG ABSCESS [None]
  - PNEUMONIA [None]
  - APHONIA [None]
  - OROPHARYNGEAL PAIN [None]
  - CANDIDIASIS [None]
  - DYSPNOEA [None]
  - FATIGUE [None]
  - DYSPHONIA [None]
